FAERS Safety Report 6664981-8 (Version None)
Quarter: 2010Q2

REPORT INFORMATION
  Report Type: 
  Country: None (occurrence: None)
  Receive Date: 20100402
  Receipt Date: 20100325
  Transmission Date: 20101027
  Serious: No
  Sender: FDA-Public Use
  Company Number: US-BIOGENIDEC-2010BI010596

PATIENT
  Sex: Male

DRUGS (1)
  1. TYSABRI [Suspect]
     Indication: MULTIPLE SCLEROSIS
     Route: 042
     Dates: start: 20090106

REACTIONS (6)
  - ANXIETY [None]
  - CHILLS [None]
  - COGNITIVE DISORDER [None]
  - HYPOAESTHESIA [None]
  - MUSCLE SPASMS [None]
  - VISION BLURRED [None]
